FAERS Safety Report 12619227 (Version 1)
Quarter: 2016Q3

REPORT INFORMATION
  Report Type: Spontaneous
  Country: US (occurrence: US)
  Receive Date: 20160803
  Receipt Date: 20160803
  Transmission Date: 20161109
  Serious: Yes (Other)
  Sender: FDA-Public Use
  Company Number: US-BAYER-2016-146922

PATIENT
  Age: 37 Year
  Sex: Female

DRUGS (1)
  1. MIRENA [Suspect]
     Active Substance: LEVONORGESTREL
     Indication: CONTRACEPTION
     Dosage: 20 MCG/24HR, CONT
     Route: 015
     Dates: start: 20160526, end: 20160715

REACTIONS (14)
  - Suicidal ideation [None]
  - Anxiety [None]
  - Chills [None]
  - Impaired work ability [None]
  - Emotional distress [None]
  - Self-injurious ideation [None]
  - Insomnia [None]
  - Feeling abnormal [None]
  - Emotional disorder [None]
  - Tremor [None]
  - Device use issue [None]
  - Nausea [None]
  - Activities of daily living impaired [None]
  - Crying [None]

NARRATIVE: CASE EVENT DATE: 2016
